FAERS Safety Report 7701002-X (Version None)
Quarter: 2011Q3

REPORT INFORMATION
  Report Type: 
  Country: None (occurrence: None)
  Receive Date: 20110822
  Receipt Date: 20110809
  Transmission Date: 20111222
  Serious: Yes (Hospitalization, Other)
  Sender: FDA-Public Use
  Company Number: BR-BAYER-2011-071579

PATIENT
  Age: 70 Year
  Sex: Male
  Weight: 59 kg

DRUGS (6)
  1. LASIX [Concomitant]
     Indication: HYPERTENSION
     Dosage: 1 DF, BID
     Route: 048
     Dates: start: 20100801
  2. PRESSAT [Concomitant]
     Indication: HYPERTENSION
     Dosage: 1 DF, BID
     Route: 048
     Dates: start: 20010101
  3. ANGIPRESS [Concomitant]
     Indication: HYPERTENSION
     Dosage: 1 DF, QD
     Route: 048
     Dates: start: 20010101
  4. SORAFENIB (RAF KINASE INHIBITOR) [Suspect]
     Indication: RENAL CANCER
     Dosage: 200 MG, BID
     Route: 048
     Dates: start: 20101001, end: 20110601
  5. DIAMICRON [Concomitant]
     Indication: DIABETES MELLITUS
     Dosage: 1 DF, QD
     Route: 048
     Dates: start: 20010101
  6. BISOPROLOL FUMARATE [Concomitant]
     Indication: HYPERTENSION
     Dosage: 1 DF, QD
     Route: 048
     Dates: start: 20010101

REACTIONS (12)
  - OROPHARYNGEAL BLISTERING [None]
  - MALNUTRITION [None]
  - ASCITES [None]
  - HEPATIC CIRRHOSIS [None]
  - PANCREATIC DISORDER [None]
  - BLISTER [None]
  - MALAISE [None]
  - ASTHENIA [None]
  - WEIGHT DECREASED [None]
  - LIVER DISORDER [None]
  - SPLEEN DISORDER [None]
  - DECREASED APPETITE [None]
